FAERS Safety Report 5102226-0 (Version None)
Quarter: 2006Q3

REPORT INFORMATION
  Report Type: 
  Country: None (occurrence: None)
  Receive Date: 20060907
  Receipt Date: 20060831
  Transmission Date: 20061208
  Serious: Yes (Death, Hospitalization)
  Sender: FDA-Public Use
  Company Number: 163-21880-06081479

PATIENT
  Age: 83 Year
  Sex: Male

DRUGS (9)
  1. REVLIMID [Suspect]
     Indication: MULTIPLE MYELOMA
     Dosage: X 21 DAYS, ORAL
     Route: 048
     Dates: start: 20060720, end: 20060801
  2. DECADRON [Concomitant]
  3. HYDROCORTISONE [Concomitant]
  4. ZOLOFT [Concomitant]
  5. INSULIN [Concomitant]
  6. NORVASC [Concomitant]
  7. SYNTHROID [Concomitant]
  8. ZOCOR [Concomitant]
  9. ASPIRIN [Concomitant]

REACTIONS (1)
  - PNEUMONIA [None]
